FAERS Safety Report 7480826-0 (Version None)
Quarter: 2011Q2

REPORT INFORMATION
  Report Type: 
  Country: None (occurrence: None)
  Receive Date: 20110506
  Receipt Date: 20110427
  Transmission Date: 20111010
  Serious: Yes (Life-Threatening, Other)
  Sender: FDA-Public Use
  Company Number: 012432

PATIENT
  Age: 19 Month
  Sex: Female

DRUGS (4)
  1. BUSULFEX [Suspect]
     Indication: STEM CELL TRANSPLANT
     Dosage: 19.2 MG/KG, INTRAVENOUS
     Route: 042
     Dates: start: 20091107, end: 20091111
  2. ETOPOSIDE [Suspect]
     Dosage: 30 MG/KG, DAILY DOSE;
     Dates: start: 20091111, end: 20091111
  3. CYCLOPHOSPHAMIDE [Suspect]
     Dosage: 120 MG/KG, DAILY DOSE;
     Dates: start: 20091112, end: 20091113
  4. PROGRAF [Suspect]
     Dosage: INTRAVENOUS
     Route: 042
     Dates: start: 20091115

REACTIONS (6)
  - THROMBOTIC MICROANGIOPATHY [None]
  - RENAL FAILURE [None]
  - URINARY BLADDER HAEMORRHAGE [None]
  - GASTROINTESTINAL HAEMORRHAGE [None]
  - VENOOCCLUSIVE LIVER DISEASE [None]
  - HAEMOLYSIS [None]
